FAERS Safety Report 6829015-0 (Version None)
Quarter: 2010Q3

REPORT INFORMATION
  Report Type: 
  Country: None (occurrence: None)
  Receive Date: 20100709
  Receipt Date: 20070226
  Transmission Date: 20110219
  Serious: No
  Sender: FDA-Public Use
  Company Number: US-PFIZER INC-2007015457

PATIENT
  Sex: Male

DRUGS (7)
  1. CHANTIX [Suspect]
     Dates: start: 20070101
  2. HYZAAR [Concomitant]
     Indication: BLOOD PRESSURE INCREASED
  3. TOPROL-XL [Concomitant]
     Indication: BLOOD PRESSURE INCREASED
  4. PLAVIX [Concomitant]
  5. ACETYLSALICYLIC ACID [Concomitant]
  6. ALLOPURINOL [Concomitant]
     Indication: GOUT
  7. WARFARIN [Concomitant]

REACTIONS (3)
  - INCREASED APPETITE [None]
  - VOMITING [None]
  - WEIGHT INCREASED [None]
